FAERS Safety Report 22159630 (Version 1)
Quarter: 2023Q1

REPORT INFORMATION
  Report Type: Spontaneous
  Country: FR (occurrence: FR)
  Receive Date: 20230331
  Receipt Date: 20230331
  Transmission Date: 20230417
  Serious: Yes (Other)
  Sender: FDA-Public Use
  Company Number: None

PATIENT
  Age: 55 Year
  Sex: Male

DRUGS (3)
  1. CYCLOPHOSPHAMIDE [Suspect]
     Active Substance: CYCLOPHOSPHAMIDE
     Indication: Tumour lysis syndrome
     Dosage: (START DATE: 2020 TO END DATE: MAY2020)
     Route: 042
  2. RITUXIMAB [Suspect]
     Active Substance: RITUXIMAB
     Indication: Tumour lysis syndrome
     Dosage: (STTART DATE: 2020 TO END DATE: MAY2020) (MAMMAL/HAMSTER/CHO CELLS)
     Route: 042
  3. FLUDARABINE PHOSPHATE [Suspect]
     Active Substance: FLUDARABINE PHOSPHATE
     Indication: Tumour lysis syndrome
     Dosage: (START DATE: 2020 TO END DATE: MAY2020)
     Route: 042

REACTIONS (1)
  - Congestive cardiomyopathy [Not Recovered/Not Resolved]
